FAERS Safety Report 4826056-X (Version None)
Quarter: 2005Q4

REPORT INFORMATION
  Report Type: 
  Country: None (occurrence: None)
  Receive Date: 20051111
  Receipt Date: 20050930
  Transmission Date: 20060501
  Serious: Yes (Hospitalization)
  Sender: FDA-Public Use
  Company Number: US-MERCK-0510USA01931

PATIENT
  Age: 56 Year
  Sex: Female
  Weight: 73 kg

DRUGS (11)
  1. DARVON [Concomitant]
     Route: 065
  2. SOMA [Concomitant]
     Route: 065
  3. NEURONTIN [Concomitant]
     Route: 065
  4. ASPIRIN [Concomitant]
     Route: 065
  5. DOXEPIN HYDROCHLORIDE [Concomitant]
     Route: 065
  6. REGLAN [Concomitant]
     Route: 065
  7. DESYREL [Concomitant]
     Route: 065
  8. XANAX [Concomitant]
     Route: 065
  9. TRICOR [Concomitant]
     Route: 065
  10. GLUCOPHAGE [Concomitant]
     Route: 065
  11. VIOXX [Suspect]
     Indication: ARTHRALGIA
     Route: 048

REACTIONS (23)
  - CARDIAC FAILURE [None]
  - CAROTID ARTERY STENOSIS [None]
  - CAROTID BRUIT [None]
  - CEREBROVASCULAR ACCIDENT [None]
  - CHEST PAIN [None]
  - CYSTITIS [None]
  - FALL [None]
  - FLANK PAIN [None]
  - HEAD INJURY [None]
  - LACERATION [None]
  - LIMB INJURY [None]
  - LOWER LIMB FRACTURE [None]
  - MENTAL STATUS CHANGES [None]
  - OEDEMA PERIPHERAL [None]
  - PAIN IN EXTREMITY [None]
  - RESPIRATORY DISTRESS [None]
  - RIB FRACTURE [None]
  - SHOCK [None]
  - SINUSITIS [None]
  - SKIN LACERATION [None]
  - SUICIDE ATTEMPT [None]
  - UPPER RESPIRATORY TRACT CONGESTION [None]
  - VERTIGO [None]
